FAERS Safety Report 5549979-5 (Version None)
Quarter: 2007Q4

REPORT INFORMATION
  Report Type: 
  Country: None (occurrence: None)
  Receive Date: 20071128
  Receipt Date: 20070117
  Transmission Date: 20080405
  Serious: Yes (Other)
  Sender: FDA-Public Use
  Company Number: 2007004877

PATIENT
  Age: 75 Year
  Sex: Female
  Weight: 65.8 kg

DRUGS (10)
  1. LIPITOR [Suspect]
     Indication: BLOOD CHOLESTEROL INCREASED
     Dosage: 20 MG (20 MG,1 IN 1 D), ORAL
     Route: 048
     Dates: start: 20060101, end: 20061001
  2. ANTI-ASTHMATICS (ANTI-ASTHMATICS) [Concomitant]
  3. ALL OTHER THERAPEUTIC PRODUCTS (ALL OTHER PRODUCTS) [Concomitant]
  4. MONTELUKAST SODIUM [Concomitant]
  5. LORAZEPAM [Concomitant]
  6. PROZAC [Concomitant]
  7. CENTRUM SILVER (ASCORBIC ACID, CALCIUM, MINERALS NOS, RETINOL, TOCOPHE [Concomitant]
  8. CALCIUM WITH VITAMIN D (CALCIUM PHOSPHATE, CALCIUM SODIUM LACTATE, ERG [Concomitant]
  9. ADVAIR DISKUS (FLUTCASONE PROPIONATE, SALMETEROL XINAFOATE) [Concomitant]
  10. ACETYLSALICYLIC ACID SRT [Concomitant]

REACTIONS (1)
  - RHABDOMYOLYSIS [None]
